FAERS Safety Report 21021607 (Version 2)
Quarter: 2022Q3

REPORT INFORMATION
  Report Type: Spontaneous
  Country: US (occurrence: None)
  Receive Date: 20220629
  Receipt Date: 20220801
  Transmission Date: 20221027
  Serious: No
  Sender: FDA-Public Use
  Company Number: 2022A222223

PATIENT
  Age: 81 Year
  Sex: Female
  Weight: 83 kg

DRUGS (3)
  1. BUDESONIDE\FORMOTEROL\GLYCOPYRRONIUM [Suspect]
     Active Substance: BUDESONIDE\FORMOTEROL\GLYCOPYRRONIUM
     Indication: Chronic obstructive pulmonary disease
     Dosage: 160MCG-9MCG-4.8MCG 2 PUFFS IN MORNING AND 2 PUFFS AT NIGHT
     Route: 055
     Dates: start: 20220330
  2. BUDESONIDE\FORMOTEROL\GLYCOPYRRONIUM [Suspect]
     Active Substance: BUDESONIDE\FORMOTEROL\GLYCOPYRRONIUM
     Indication: Asthma
     Dosage: 160MCG-9MCG-4.8MCG 2 PUFFS IN MORNING AND 2 PUFFS AT NIGHT
     Route: 055
     Dates: start: 20220330
  3. SYMBICORT [Suspect]
     Active Substance: BUDESONIDE\FORMOTEROL FUMARATE DIHYDRATE
     Indication: Chronic obstructive pulmonary disease
     Dosage: 160-4.5 MCG 2 PUFFS IN MORNING AND 2 PUFFS AT NIGHT
     Route: 055
     Dates: start: 2020

REACTIONS (3)
  - Dysphonia [Not Recovered/Not Resolved]
  - Throat clearing [Not Recovered/Not Resolved]
  - Therapeutic response decreased [Unknown]
